FAERS Safety Report 18617794 (Version 3)
Quarter: 2021Q2

REPORT INFORMATION
  Report Type: Spontaneous
  Country: JP (occurrence: JP)
  Receive Date: 20201215
  Receipt Date: 20210410
  Transmission Date: 20210717
  Serious: Yes (Hospitalization)
  Sender: FDA-Public Use
  Company Number: JP-UCBSA-2020051177

PATIENT
  Age: 88 Year
  Sex: Female
  Weight: 39.2 kg

DRUGS (28)
  1. METHOTREXATE [METHOTREXATE SODIUM] [Suspect]
     Active Substance: METHOTREXATE SODIUM
     Dosage: 4 MILLIGRAM, WEEKLY (QW)
     Route: 048
     Dates: start: 201708, end: 201801
  2. PROGRAF [Suspect]
     Active Substance: TACROLIMUS
     Dosage: 1.5 MILLIGRAM, ONCE DAILY (QD)
     Route: 048
     Dates: start: 201609, end: 201802
  3. METHOTREXATE [METHOTREXATE SODIUM] [Suspect]
     Active Substance: METHOTREXATE SODIUM
     Indication: PRODUCT USED FOR UNKNOWN INDICATION
     Dosage: 8 MILLIGRAM, WEEKLY (QW)
     Route: 048
     Dates: end: 201412
  4. METHOTREXATE [METHOTREXATE SODIUM] [Suspect]
     Active Substance: METHOTREXATE SODIUM
     Dosage: 8 MILLIGRAM, WEEKLY (QW)
     Route: 048
     Dates: start: 201505, end: 201507
  5. PREDONINE [PREDNISOLONE ACETATE] [Suspect]
     Active Substance: PREDNISOLONE ACETATE
     Indication: PRODUCT USED FOR UNKNOWN INDICATION
     Dosage: 10 MILLIGRAM, ONCE DAILY (QD)
     Route: 042
  6. PROGRAF [Suspect]
     Active Substance: TACROLIMUS
     Indication: RHEUMATOID ARTHRITIS
     Dosage: 1 MILLIGRAM, ONCE DAILY (QD)
     Route: 048
     Dates: start: 20150201, end: 201504
  7. PROGRAF [Suspect]
     Active Substance: TACROLIMUS
     Dosage: 1.5 MILLIGRAM, ONCE DAILY (QD)
     Route: 048
     Dates: start: 201504, end: 201505
  8. PROGRAF [Suspect]
     Active Substance: TACROLIMUS
     Dosage: 1 MILLIGRAM, ONCE DAILY (QD)
     Route: 048
     Dates: start: 201802, end: 201812
  9. METHOTREXATE [METHOTREXATE SODIUM] [Suspect]
     Active Substance: METHOTREXATE SODIUM
     Dosage: 6 MILLIGRAM, WEEKLY (QW)
     Route: 048
     Dates: start: 201507, end: 201708
  10. METHOTREXATE [METHOTREXATE SODIUM] [Suspect]
     Active Substance: METHOTREXATE SODIUM
     Dosage: 6 MILLIGRAM
     Route: 048
     Dates: start: 202002
  11. METHOTREXATE [METHOTREXATE SODIUM] [Suspect]
     Active Substance: METHOTREXATE SODIUM
     Dosage: 10 MILLIGRAM, WEEKLY (QW)
     Route: 048
     Dates: start: 201412, end: 201505
  12. PREDONINE [PREDNISOLONE ACETATE] [Suspect]
     Active Substance: PREDNISOLONE ACETATE
     Dosage: 2.5 MILLIGRAM, ONCE DAILY (QD)
     Route: 042
     Dates: start: 201505, end: 201509
  13. PREDONINE [PREDNISOLONE ACETATE] [Suspect]
     Active Substance: PREDNISOLONE ACETATE
     Dosage: 2 MILLIGRAM, ONCE DAILY (QD)
     Route: 042
     Dates: start: 201608, end: 201801
  14. PROGRAF [Suspect]
     Active Substance: TACROLIMUS
     Dosage: 2 MILLIGRAM, ONCE DAILY (QD)
     Route: 048
     Dates: start: 202005
  15. CIMZIA [Suspect]
     Active Substance: CERTOLIZUMAB PEGOL
     Indication: RHEUMATOID ARTHRITIS
     Dosage: 200 MILLIGRAM, EV 2 WEEKS(QOW)
     Route: 058
     Dates: start: 20200702, end: 20201119
  16. PREDONINE [PREDNISOLONE ACETATE] [Suspect]
     Active Substance: PREDNISOLONE ACETATE
     Dosage: 1 MILLIGRAM, ONCE DAILY (QD)
     Route: 042
     Dates: start: 201801, end: 201806
  17. FENTANYL. [Concomitant]
     Active Substance: FENTANYL
     Indication: PRODUCT USED FOR UNKNOWN INDICATION
     Dosage: UNK
     Route: 042
  18. PREDONINE [PREDNISOLONE ACETATE] [Suspect]
     Active Substance: PREDNISOLONE ACETATE
     Dosage: 8 MILLIGRAM, ONCE DAILY (QD)
     Route: 042
  19. PROPOFOL. [Concomitant]
     Active Substance: PROPOFOL
     Indication: PRODUCT USED FOR UNKNOWN INDICATION
     Dosage: 336 MILLIGRAM, ONCE DAILY (QD)
     Route: 042
  20. FENTANYL. [Concomitant]
     Active Substance: FENTANYL
     Route: 042
  21. PREDONINE [PREDNISOLONE ACETATE] [Suspect]
     Active Substance: PREDNISOLONE ACETATE
     Dosage: 5 MILLIGRAM, ONCE DAILY (QD)
     Route: 042
     Dates: end: 201505
  22. MICAFUNGIN SODIUM [Concomitant]
     Active Substance: MICAFUNGIN SODIUM
     Indication: SYSTEMIC CANDIDA
     Dosage: UNK
  23. PREDONINE [PREDNISOLONE ACETATE] [Suspect]
     Active Substance: PREDNISOLONE ACETATE
     Dosage: 5 MILLIGRAM, ONCE DAILY (QD)
     Route: 042
     Dates: start: 201509, end: 201603
  24. PREDONINE [PREDNISOLONE ACETATE] [Suspect]
     Active Substance: PREDNISOLONE ACETATE
     Dosage: 4 MILLIGRAM, ONCE DAILY (QD)
     Route: 042
     Dates: start: 201607, end: 201608
  25. PREDONINE [PREDNISOLONE ACETATE] [Suspect]
     Active Substance: PREDNISOLONE ACETATE
     Dosage: 5 MILLIGRAM, ONCE DAILY (QD)
     Route: 042
     Dates: start: 202001
  26. PROGRAF [Suspect]
     Active Substance: TACROLIMUS
     Dosage: 2 MILLIGRAM, ONCE DAILY (QD)
     Route: 048
     Dates: start: 201505, end: 201609
  27. PROGRAF [Suspect]
     Active Substance: TACROLIMUS
     Dosage: 1.5 MILLIGRAM, ONCE DAILY (QD)
     Route: 048
     Dates: start: 202001, end: 202005
  28. SIMPONI [Concomitant]
     Active Substance: GOLIMUMAB
     Indication: PRODUCT USED FOR UNKNOWN INDICATION
     Dosage: UNK
     Route: 058

REACTIONS (3)
  - Systemic candida [Recovering/Resolving]
  - Gastrointestinal perforation [Recovering/Resolving]
  - Diffuse large B-cell lymphoma [Recovering/Resolving]

NARRATIVE: CASE EVENT DATE: 20201130
